FAERS Safety Report 6694804-2 (Version None)
Quarter: 2010Q2

REPORT INFORMATION
  Report Type: 
  Country: None (occurrence: None)
  Receive Date: 20100423
  Receipt Date: 20100414
  Transmission Date: 20101027
  Serious: Yes (Hospitalization, Other)
  Sender: FDA-Public Use
  Company Number: DE-JNJFOC-20100402956

PATIENT
  Age: 44 Year
  Sex: Male
  Weight: 79 kg

DRUGS (4)
  1. RISPERDAL [Suspect]
     Indication: DRUG USE FOR UNKNOWN INDICATION
     Route: 048
     Dates: start: 20091216, end: 20100123
  2. REMERGIL [Suspect]
     Indication: DEPRESSION
     Route: 048
     Dates: start: 20091204, end: 20100119
  3. VENLAFAXINE HCL [Concomitant]
     Indication: DEPRESSION
     Route: 048
     Dates: start: 20091209
  4. LORAZEPAM [Concomitant]
     Route: 048
     Dates: start: 20091209, end: 20100127

REACTIONS (1)
  - HEPATITIS ACUTE [None]
